FAERS Safety Report 26092661 (Version 1)
Quarter: 2025Q4

REPORT INFORMATION
  Report Type: Spontaneous
  Country: CN (occurrence: CN)
  Receive Date: 20251126
  Receipt Date: 20251126
  Transmission Date: 20260118
  Serious: Yes (Hospitalization)
  Sender: ALKEM
  Company Number: CN-ALKEM LABORATORIES LIMITED-CN-ALKEM-2025-08243

PATIENT
  Age: 22 Year
  Sex: Male

DRUGS (9)
  1. AMLODIPINE BESYLATE [Interacting]
     Active Substance: AMLODIPINE BESYLATE
     Indication: Product used for unknown indication
     Dosage: UNK (TABLETS)
     Route: 065
  2. MYCOPHENOLATE MOFETIL [Suspect]
     Active Substance: MYCOPHENOLATE MOFETIL
     Indication: Prophylaxis against transplant rejection
     Dosage: 0.5 GRAM, BID
     Route: 065
  3. MYCOPHENOLATE MOFETIL [Suspect]
     Active Substance: MYCOPHENOLATE MOFETIL
     Dosage: 0.25 GRAM, BID (ADJUSTED DOSE)
     Route: 065
  4. TACROLIMUS [Suspect]
     Active Substance: TACROLIMUS
     Indication: Prophylaxis against transplant rejection
     Dosage: 0.5 MILLIGRAM, BID
     Route: 065
  5. TACROLIMUS [Suspect]
     Active Substance: TACROLIMUS
     Dosage: 1 MILLIGRAM, BID
     Route: 065
     Dates: start: 20221230
  6. TACROLIMUS [Suspect]
     Active Substance: TACROLIMUS
     Dosage: 2 MILLIGRAM, BID
     Route: 065
     Dates: start: 20230103
  7. PAXLOVID [Interacting]
     Active Substance: NIRMATRELVIR\RITONAVIR
     Indication: COVID-19
     Dosage: UNK, BID
     Route: 065
     Dates: start: 20221227, end: 20221230
  8. ZOLPIDEM TARTRATE [Concomitant]
     Active Substance: ZOLPIDEM TARTRATE
     Indication: Poor quality sleep
     Dosage: 5 MILLIGRAM (QN)
     Route: 065
  9. ZOLPIDEM TARTRATE [Concomitant]
     Active Substance: ZOLPIDEM TARTRATE
     Indication: Irritability

REACTIONS (3)
  - COVID-19 [Recovered/Resolved]
  - Immunosuppressant drug level decreased [Unknown]
  - Drug interaction [Unknown]
